FAERS Safety Report 13067375 (Version 1)
Quarter: 2016Q4

REPORT INFORMATION
  Report Type: Report from Study
  Country: KR (occurrence: KR)
  Receive Date: 20161228
  Receipt Date: 20161228
  Transmission Date: 20170207
  Serious: Yes (Hospitalization)
  Sender: FDA-Public Use
  Company Number: KR-ROCHE-1347779

PATIENT
  Age: 70 Year
  Sex: Male
  Weight: 59 kg

DRUGS (11)
  1. CODEINE [Concomitant]
     Active Substance: CODEINE
     Indication: COUGH
     Route: 048
     Dates: start: 20140127
  2. HEXAMEDINE [Concomitant]
     Indication: MUCOSAL INFLAMMATION
     Dosage: MILLLITER, CM3
     Route: 065
     Dates: start: 20140212, end: 20140215
  3. ATIVAN [Concomitant]
     Active Substance: LORAZEPAM
     Indication: INSOMNIA
     Route: 042
     Dates: start: 20140209, end: 20140209
  4. POTASSIUM CHLORIDE. [Concomitant]
     Active Substance: POTASSIUM CHLORIDE
     Indication: HYPONATRAEMIA
     Route: 042
     Dates: start: 20140210, end: 20140213
  5. ATEZOLIZUMAB [Suspect]
     Active Substance: ATEZOLIZUMAB
     Indication: NON-SMALL CELL LUNG CANCER
     Dosage: DATE OF LAST DOSE PRIOR TO SAES: 27/JAN/2014 (1200 MG)
     Route: 042
     Dates: start: 20140127
  6. NEURONTIN (SOUTH KOREA) [Concomitant]
     Indication: PERIPHERAL SENSORY NEUROPATHY
     Route: 048
     Dates: start: 20140211, end: 20140212
  7. DUPHALAC-EASY [Concomitant]
     Indication: CONSTIPATION
     Route: 048
     Dates: start: 20140215, end: 20140215
  8. CURAN [Concomitant]
     Active Substance: RANITIDINE HYDROCHLORIDE
     Indication: GASTRITIS
     Route: 048
     Dates: start: 20140212, end: 20140414
  9. PHOSTEN [Concomitant]
     Indication: HYPONATRAEMIA
     Dosage: MILLILITER, CM3
     Route: 042
     Dates: start: 20140210, end: 20140210
  10. CALCIUM GLUCONATE. [Concomitant]
     Active Substance: CALCIUM GLUCONATE
     Indication: HYPONATRAEMIA
     Route: 042
     Dates: start: 20140210, end: 20140210
  11. MASI [Concomitant]
     Indication: HYPONATRAEMIA
     Route: 042
     Dates: start: 20140209, end: 20140209

REACTIONS (4)
  - Pyrexia [Recovered/Resolved]
  - Diarrhoea [Recovered/Resolved]
  - Rash [Recovered/Resolved]
  - Hypothyroidism [Recovered/Resolved]

NARRATIVE: CASE EVENT DATE: 20140208
